FAERS Safety Report 20577659 (Version 1)
Quarter: 2022Q1

REPORT INFORMATION
  Report Type: Spontaneous
  Country: US (occurrence: US)
  Receive Date: 20220310
  Receipt Date: 20220310
  Transmission Date: 20220423
  Serious: Yes (Hospitalization)
  Sender: FDA-Public Use
  Company Number: US-MYLANLABS-2022M1017718

PATIENT
  Age: 74 Year
  Sex: Male

DRUGS (8)
  1. VENLAFAXINE [Suspect]
     Active Substance: VENLAFAXINE HYDROCHLORIDE
     Indication: Catatonia
     Dosage: 225 MILLIGRAM (EXTENDED-RELEASE 225MG EVERY MORNING)
     Route: 065
  2. QUETIAPINE [Suspect]
     Active Substance: QUETIAPINE
     Indication: Catatonia
     Dosage: 50 MILLIGRAM, QH
     Route: 065
  3. LITHIUM [Suspect]
     Active Substance: LITHIUM
     Indication: Catatonia
     Dosage: UNK (MAXIMAL LEVEL 0.68 MEQ/L)
     Route: 065
  4. CLONAZEPAM [Suspect]
     Active Substance: CLONAZEPAM
     Indication: Catatonia
     Dosage: 2 MILLIGRAM, BID
     Route: 065
  5. LORAZEPAM [Concomitant]
     Active Substance: LORAZEPAM
     Indication: Catatonia
     Dosage: 1.5 MILLIGRAM, Q6H
     Route: 042
  6. LORAZEPAM [Concomitant]
     Active Substance: LORAZEPAM
     Dosage: 3 MILLIGRAM, Q6H
     Route: 042
  7. LORAZEPAM [Concomitant]
     Active Substance: LORAZEPAM
     Dosage: 16 MILLIGRAM, QD
     Route: 042
  8. LORAZEPAM [Concomitant]
     Active Substance: LORAZEPAM
     Dosage: 3 MILLIGRAM, QD
     Route: 042

REACTIONS (3)
  - Drug ineffective for unapproved indication [Unknown]
  - Ataxia [Unknown]
  - Off label use [Unknown]
